FAERS Safety Report 8313326-6 (Version None)
Quarter: 2012Q2

REPORT INFORMATION
  Report Type: 
  Country: None (occurrence: None)
  Receive Date: 20120426
  Receipt Date: 20120416
  Transmission Date: 20120825
  Serious: Yes (Other)
  Sender: FDA-Public Use
  Company Number: PHHY2011US25672

PATIENT
  Sex: Female
  Weight: 24.7 kg

DRUGS (10)
  1. EXJADE [Suspect]
     Dosage: 250 MG, BID
     Route: 048
     Dates: end: 20120214
  2. ASPIRIN [Concomitant]
     Indication: ISCHAEMIC HEART DISEASE PROPHYLAXIS
     Dosage: 81 MG, UNK
     Route: 048
     Dates: start: 20101120
  3. DESFERAL [Concomitant]
     Dates: start: 20120329
  4. EXJADE [Suspect]
     Dosage: 500 MG, QD
     Route: 048
     Dates: start: 20111231
  5. CLARITIN [Concomitant]
     Indication: RHINITIS ALLERGIC
     Dosage: 2.5 MG DAILY PRN
     Route: 048
     Dates: start: 20110830
  6. KEPPRA [Concomitant]
     Indication: CONVULSION
     Route: 048
     Dates: start: 20100924
  7. ALBUTEROL [Concomitant]
     Indication: ASTHMA
     Dosage: 2 PUFFS PRN
  8. EXJADE [Suspect]
     Indication: IRON OVERLOAD
     Dosage: 500 MG, QD
     Route: 048
     Dates: start: 20110301
  9. EXJADE [Suspect]
     Dosage: 750 MG, QD
     Route: 048
     Dates: start: 20111015, end: 20111227
  10. MIRALAX [Concomitant]
     Indication: CONSTIPATION

REACTIONS (7)
  - SUBDURAL HAEMORRHAGE [None]
  - TRANSAMINASES INCREASED [None]
  - ABDOMINAL PAIN [None]
  - VOMITING [None]
  - POST PROCEDURAL HAEMORRHAGE [None]
  - ABDOMINAL DISCOMFORT [None]
  - NAUSEA [None]
